FAERS Safety Report 12354482 (Version 1)
Quarter: 2016Q2

REPORT INFORMATION
  Report Type: Spontaneous
  Country: US (occurrence: US)
  Receive Date: 20160511
  Receipt Date: 20160511
  Transmission Date: 20160815
  Serious: Yes (Hospitalization, Other)
  Sender: FDA-Public Use
  Company Number: US-APOTEX-2016AP008272

PATIENT
  Age: 16 Year
  Sex: Male

DRUGS (8)
  1. QUETIAPINE FUMARATE. [Suspect]
     Active Substance: QUETIAPINE FUMARATE
     Dosage: 300 MG, QD
     Route: 048
  2. QUETIAPINE FUMARATE. [Suspect]
     Active Substance: QUETIAPINE FUMARATE
     Dosage: 100 MG, UNK
     Route: 048
  3. QUETIAPINE FUMARATE. [Suspect]
     Active Substance: QUETIAPINE FUMARATE
     Indication: INITIAL INSOMNIA
     Dosage: 50 MG, UNK
     Route: 048
  4. CLONAZEPAM TABLETS USP [Suspect]
     Active Substance: CLONAZEPAM
     Indication: DRUG ABUSE
     Route: 065
  5. BUPROPION. [Concomitant]
     Active Substance: BUPROPION
     Indication: DEPRESSION
  6. ALPRAZOLAM. [Suspect]
     Active Substance: ALPRAZOLAM
     Indication: DRUG ABUSE
     Dosage: 4 DF, UNK
     Route: 048
  7. QUETIAPINE FUMARATE. [Suspect]
     Active Substance: QUETIAPINE FUMARATE
     Dosage: 400 MG, TID
     Route: 048
  8. BUPROPION. [Concomitant]
     Active Substance: BUPROPION
     Indication: ATTENTION DEFICIT/HYPERACTIVITY DISORDER
     Dosage: 150 MG, QD
     Route: 065

REACTIONS (7)
  - Somnolence [Unknown]
  - Sedation [Unknown]
  - Unresponsive to stimuli [Unknown]
  - Drug dependence [Unknown]
  - Drug abuse [Unknown]
  - Palpitations [Unknown]
  - Feeling abnormal [Unknown]
